FAERS Safety Report 10574757 (Version 1)
Quarter: 2014Q4

REPORT INFORMATION
  Report Type: Spontaneous
  Country: US (occurrence: US)
  Receive Date: 20141110
  Receipt Date: 20141110
  Transmission Date: 20150529
  Serious: Yes (Hospitalization, Other)
  Sender: FDA-Public Use
  Company Number: US-BAXTER-2014BAX066376

PATIENT
  Sex: Female

DRUGS (2)
  1. NEXTERONE [Suspect]
     Active Substance: AMIODARONE HYDROCHLORIDE
     Indication: ATRIAL FIBRILLATION
     Route: 042
  2. BICARBONATE [Suspect]
     Active Substance: BICARBONATE ION
     Indication: ACIDOSIS
     Dosage: CONTINUOUS
     Route: 042

REACTIONS (5)
  - Atrial fibrillation [Unknown]
  - Device leakage [Unknown]
  - Haemorrhage [Unknown]
  - Blood pressure decreased [Unknown]
  - Acidosis [Unknown]

NARRATIVE: CASE EVENT DATE: 20141030
